FAERS Safety Report 17367732 (Version 6)
Quarter: 2020Q4

REPORT INFORMATION
  Report Type: Spontaneous
  Country: IN (occurrence: IN)
  Receive Date: 20200204
  Receipt Date: 20201013
  Transmission Date: 20210113
  Serious: Yes (Death, Other)
  Sender: FDA-Public Use
  Company Number: IN-PFIZER INC-2018479246

PATIENT
  Age: 59 Year
  Sex: Male

DRUGS (5)
  1. PALBACE [Suspect]
     Active Substance: PALBOCICLIB
     Indication: BREAST CANCER METASTATIC
     Dosage: 125 MG, 1X/DAY
     Route: 048
     Dates: start: 20180123
  2. FULVESTRANT. [Concomitant]
     Active Substance: FULVESTRANT
     Dosage: UNK
  3. PALBACE [Suspect]
     Active Substance: PALBOCICLIB
     Dosage: 100 MG, CYCLIC (ONCE A DAY, 21 DAYS, STOP 1 WEEK)
     Route: 048
  4. FASLODEX [Concomitant]
     Active Substance: FULVESTRANT
     Dosage: 500 MG, UNK (250MG DEEP IM IN CAOH/ CALCIUM HYDROXIDE GLUTTED REGION)
     Route: 030
  5. ZOLEDRONIC [Concomitant]
     Active Substance: ZOLEDRONIC ACID
     Dosage: UNK

REACTIONS (9)
  - Neoplasm progression [Unknown]
  - Swelling face [Unknown]
  - Liver disorder [Fatal]
  - Pyrexia [Unknown]
  - Bone pain [Unknown]
  - Neck pain [Unknown]
  - Pain [Unknown]
  - Neutrophil count decreased [Unknown]
  - Haemoglobin decreased [Unknown]

NARRATIVE: CASE EVENT DATE: 20191004
